FAERS Safety Report 4500218-3 (Version None)
Quarter: 2004Q4

REPORT INFORMATION
  Report Type: 
  Country: None (occurrence: None)
  Receive Date: 20041105
  Receipt Date: 20041105
  Transmission Date: 20050328
  Serious: Yes (Other)
  Sender: FDA-Public Use
  Company Number: 200410359BBE

PATIENT
  Sex: Male

DRUGS (10)
  1. KOATE [Suspect]
     Indication: HAEMOPHILIA
     Dosage: UNK
     Route: 065
  2. FACTOR IX COMPLEX [Suspect]
     Indication: HAEMOPHILIA
     Dosage: UNK
     Route: 065
  3. FACTOR VIII (BAXTER) (FACTOR VIII) [Suspect]
     Indication: HAEMOPHILIA
  4. FACTOR IX COMPLEX [Suspect]
     Indication: HAEMOPHILIA
  5. FACTOR VIII (ARMOUR) (FACTOR VIII) [Suspect]
     Indication: HAEMOPHILIA
  6. FACTOR IX COMPLEX [Suspect]
     Indication: HAEMOPHILIA
  7. FACTOR VIII (AVENTIS BEHRING) (FACTOR VIII) [Suspect]
     Indication: HAEMOPHILIA
  8. FACTOR IX (AVENTIS BEHRING) (FACTOR IX) [Suspect]
     Indication: HAEMOPHILIA
  9. FACTOR VIII (ALPHA THERAPEUTCS) (FACTOR VIII) [Suspect]
     Indication: HAEMOPHILIA
  10. FACTOR IX COMPLEX [Suspect]
     Indication: HAEMOPHILIA

REACTIONS (1)
  - ADVERSE EVENT [None]
